FAERS Safety Report 25585172 (Version 1)
Quarter: 2025Q3

REPORT INFORMATION
  Report Type: Spontaneous
  Country: US (occurrence: None)
  Receive Date: 20250718
  Receipt Date: 20250718
  Transmission Date: 20251021
  Serious: No
  Sender: FDA-CTU
  Company Number: None

PATIENT
  Age: 69 Year
  Sex: Female
  Weight: 70.65 kg

DRUGS (8)
  1. BOSULIF [Suspect]
     Active Substance: BOSUTINIB MONOHYDRATE
     Indication: Chronic myeloid leukaemia
     Dosage: FREQUENCY : DAILY;?
     Route: 048
     Dates: start: 20240724
  2. BOSULIF [Suspect]
     Active Substance: BOSUTINIB MONOHYDRATE
     Indication: Philadelphia chromosome positive
  3. DOXYCYCLIN HYCLATE 100MG TAB [Concomitant]
     Dates: start: 20250219
  4. CEFDINIR 300MG CAPS [Concomitant]
     Dates: start: 20250219
  5. PREDNISONE 1MG TAB [Concomitant]
     Dates: start: 20250219
  6. IMODIUM A-SD 2MG TAB [Concomitant]
     Dates: start: 20231006
  7. PANTOPRAZOLE [Concomitant]
     Active Substance: PANTOPRAZOLE
     Dates: start: 20230705
  8. ELIQUIS [Concomitant]
     Active Substance: APIXABAN
     Dates: start: 20230607

REACTIONS (2)
  - Alopecia [None]
  - Diarrhoea [None]

NARRATIVE: CASE EVENT DATE: 20250718
